FAERS Safety Report 9455717 (Version 1)
Quarter: 2013Q3

REPORT INFORMATION
  Report Type: Spontaneous
  Country: IT (occurrence: IT)
  Receive Date: 20130813
  Receipt Date: 20130813
  Transmission Date: 20140515
  Serious: Yes (Other)
  Sender: FDA-Public Use
  Company Number: IT-RANBAXY-2013R1-72212

PATIENT
  Age: 70 Year
  Sex: 0

DRUGS (4)
  1. AMOXICILLINA E ACIDO CLAVULANICO RANBAXY 875MG+125MG COMPRESSE RIVESTI [Suspect]
     Indication: OROPHARYNGEAL PAIN
     Dosage: 1 G, SINGLE
     Route: 048
     Dates: start: 20130724, end: 20130724
  2. LACIPIL [Concomitant]
     Indication: PRODUCT USED FOR UNKNOWN INDICATION
     Route: 048
  3. SINGULAIR [Concomitant]
     Indication: PRODUCT USED FOR UNKNOWN INDICATION
     Route: 048
  4. INUVER [Concomitant]
     Indication: PRODUCT USED FOR UNKNOWN INDICATION
     Dosage: 2 DF, QD
     Route: 055

REACTIONS (3)
  - Pruritus [Recovered/Resolved]
  - Dyspnoea [Recovered/Resolved]
  - Erythema [Recovered/Resolved]
